FAERS Safety Report 13399580 (Version 1)
Quarter: 2017Q2

REPORT INFORMATION
  Report Type: Spontaneous
  Country: US (occurrence: US)
  Receive Date: 20170403
  Receipt Date: 20170403
  Transmission Date: 20170830
  Serious: Yes (Other)
  Sender: FDA-Public Use
  Company Number: None

PATIENT
  Age: 52 Year
  Sex: Male
  Weight: 88.2 kg

DRUGS (12)
  1. BISOPROLOL FUMERATE [Suspect]
     Active Substance: BISOPROLOL FUMARATE
     Indication: BLOOD PRESSURE INCREASED
     Dosage: ?          QUANTITY:270 TABLET(S);?
     Route: 048
     Dates: start: 20170329, end: 20170331
  2. VITAMIN K-2 [Concomitant]
  3. MAGNESIUM GLYCINATE [Concomitant]
     Active Substance: MAGNESIUM GLYCINATE
  4. LOSARTAN. [Concomitant]
     Active Substance: LOSARTAN
  5. POTASSIUM [Concomitant]
     Active Substance: POTASSIUM
  6. HAWTHORN [Concomitant]
     Active Substance: CRATAEGUS LAEVIGATA FRUIT
  7. VITAMIN MULTI PACK [Concomitant]
  8. CO-Q10 [Concomitant]
  9. GARLIC. [Concomitant]
     Active Substance: GARLIC
  10. COLCRYS [Concomitant]
     Active Substance: COLCHICINE
  11. ULORIC [Concomitant]
     Active Substance: FEBUXOSTAT
  12. VITAMIN D3 [Concomitant]
     Active Substance: CHOLECALCIFEROL

REACTIONS (4)
  - Blood pressure increased [None]
  - Condition aggravated [None]
  - Product quality issue [None]
  - Drug effect decreased [None]

NARRATIVE: CASE EVENT DATE: 20170331
